FAERS Safety Report 5128700-9 (Version None)
Quarter: 2006Q4

REPORT INFORMATION
  Report Type: 
  Country: None (occurrence: None)
  Receive Date: 20061017
  Receipt Date: 20060724
  Transmission Date: 20070319
  Serious: Yes (Hospitalization)
  Sender: FDA-Public Use
  Company Number: DE-AVENTIS-200612168DE

PATIENT
  Age: 36 Year
  Sex: Female

DRUGS (5)
  1. ARAVA                              /01414801/ [Suspect]
     Indication: RHEUMATOID ARTHRITIS
     Route: 048
     Dates: start: 20051101, end: 20060701
  2. METHOTREXAT                        /00113801/ [Suspect]
     Indication: RHEUMATOID ARTHRITIS
     Dates: start: 20041201, end: 20060401
  3. METHOTREXAT                        /00113801/ [Suspect]
     Route: 030
     Dates: start: 20060401
  4. SULFASALAZIN [Concomitant]
     Indication: RHEUMATOID ARTHRITIS
     Dosage: DOSE: NOT REPORTED
  5. AZATHIOPRINE [Concomitant]
     Indication: RHEUMATOID ARTHRITIS
     Dosage: DOSE: NOT REPORTED

REACTIONS (6)
  - ALANINE AMINOTRANSFERASE INCREASED [None]
  - ALOPECIA [None]
  - ASPARTATE AMINOTRANSFERASE INCREASED [None]
  - GAMMA-GLUTAMYLTRANSFERASE INCREASED [None]
  - SYSTEMIC LUPUS ERYTHEMATOSUS [None]
  - TRANSAMINASES INCREASED [None]
